FAERS Safety Report 16158818 (Version 1)
Quarter: 2019Q2

REPORT INFORMATION
  Report Type: Spontaneous
  Country: RS (occurrence: RS)
  Receive Date: 20190404
  Receipt Date: 20190404
  Transmission Date: 20190711
  Serious: Yes (Disabling, Other)
  Sender: FDA-Public Use
  Company Number: RS-ASTRAZENECA-2019SE50275

PATIENT
  Age: 20425 Day
  Sex: Male

DRUGS (8)
  1. ASPIRIN. [Concomitant]
     Active Substance: ASPIRIN
  2. BISOPROLOL [Concomitant]
     Active Substance: BISOPROLOL
  3. BRILIQUE [Suspect]
     Active Substance: TICAGRELOR
     Indication: ACUTE MYOCARDIAL INFARCTION
     Route: 048
     Dates: start: 201803
  4. ZOFENOPRIL [Concomitant]
     Active Substance: ZOFENOPRIL
  5. ROXERA [Concomitant]
     Active Substance: ROSUVASTATIN CALCIUM
  6. NOLPAZA [Concomitant]
     Active Substance: PANTOPRAZOLE SODIUM
  7. NOVORAPID [Concomitant]
     Active Substance: INSULIN ASPART
     Dosage: 3X7 I.J
     Route: 058
  8. LEVEMIR [Concomitant]
     Active Substance: INSULIN DETEMIR
     Dosage: 24I.J. IN THE EVENING
     Route: 058

REACTIONS (2)
  - Eye haemorrhage [Unknown]
  - Blindness unilateral [Unknown]

NARRATIVE: CASE EVENT DATE: 20181211
